FAERS Safety Report 4545324-2 (Version None)
Quarter: 2005Q1

REPORT INFORMATION
  Report Type: 
  Country: None (occurrence: None)
  Receive Date: 20050103
  Receipt Date: 20041110
  Transmission Date: 20050727
  Serious: Yes (Disabling, Other)
  Sender: FDA-Public Use
  Company Number: 2004094320

PATIENT
  Age: 63 Year
  Sex: 0
  Weight: 65 kg

DRUGS (4)
  1. CELEBREX [Suspect]
     Indication: OSTEOARTHRITIS
     Dosage: (100 MG), ORAL
     Route: 048
     Dates: start: 20030501, end: 20041001
  2. CLOPIDOGREL BISULFATE [Concomitant]
  3. ATORVASTATIN (ATORVASTATIN) [Concomitant]
  4. CANDESARTAN (CANDESARTAN) [Concomitant]

REACTIONS (5)
  - CEREBROVASCULAR ACCIDENT [None]
  - CHEST DISCOMFORT [None]
  - DYSPNOEA [None]
  - PALPITATIONS [None]
  - TRANSIENT ISCHAEMIC ATTACK [None]
